FAERS Safety Report 22031143 (Version 1)
Quarter: 2023Q1

REPORT INFORMATION
  Report Type: Spontaneous
  Country: JP (occurrence: JP)
  Receive Date: 20230223
  Receipt Date: 20230223
  Transmission Date: 20230417
  Serious: Yes (Other)
  Sender: FDA-Public Use
  Company Number: JP-PFIZER INC-202300072507

PATIENT

DRUGS (1)
  1. ENBREL [Suspect]
     Active Substance: ETANERCEPT
     Indication: Product used for unknown indication
     Dosage: 4 TO 5 MONTHS
     Route: 065

REACTIONS (3)
  - Hepatic fibrosis [Unknown]
  - Hepatic function abnormal [Unknown]
  - Transaminases increased [Unknown]
